FAERS Safety Report 13969919 (Version 2)
Quarter: 2017Q4

REPORT INFORMATION
  Report Type: Spontaneous
  Country: US (occurrence: US)
  Receive Date: 20170914
  Receipt Date: 20171030
  Transmission Date: 20180321
  Serious: Yes (Other)
  Sender: FDA-Public Use
  Company Number: US-PFIZER INC-2017393261

PATIENT
  Age: 95 Year
  Sex: Female

DRUGS (3)
  1. GABAPENTIN. [Suspect]
     Active Substance: GABAPENTIN
     Dosage: 100 MG, 1X/DAY (100 MG ONCE A DAY AT BED TIME)
     Dates: start: 20170821, end: 20170910
  2. GABAPENTIN. [Suspect]
     Active Substance: GABAPENTIN
     Indication: MOANING
     Dosage: 100 MG, 1X/DAY (100 MG ONCE A DAY AT BED TIME)
     Dates: start: 20170821, end: 20170910
  3. NEURONTIN [Suspect]
     Active Substance: GABAPENTIN
     Indication: MOANING
     Dosage: 100 MG, 1X/DAY (ONCE PER NIGHT)
     Dates: start: 20170822

REACTIONS (4)
  - Coma [Recovered/Resolved]
  - Speech disorder [Recovered/Resolved]
  - Weight decreased [Unknown]
  - Product use in unapproved indication [Unknown]

NARRATIVE: CASE EVENT DATE: 20170821
